FAERS Safety Report 6018133-5 (Version None)
Quarter: 2008Q4

REPORT INFORMATION
  Report Type: 
  Country: None (occurrence: None)
  Receive Date: 20081223
  Receipt Date: 20081216
  Transmission Date: 20090506
  Serious: Yes (Death, Other)
  Sender: FDA-Public Use
  Company Number: ES-ELI_LILLY_AND_COMPANY-ES200812004810

PATIENT
  Age: 79 Year
  Sex: Male

DRUGS (2)
  1. GEMZAR [Suspect]
     Indication: NON-SMALL CELL LUNG CANCER
     Dosage: 1100 MG/M2, UNKNOWN
     Route: 042
  2. CARBOPLATIN [Concomitant]
     Indication: NON-SMALL CELL LUNG CANCER
     Dosage: 300 MG, UNKNOWN
     Route: 042

REACTIONS (5)
  - ANAEMIA [None]
  - CUTANEOUS VASCULITIS [None]
  - HYPERCALCAEMIA OF MALIGNANCY [None]
  - METASTASES TO BONE [None]
  - RENAL IMPAIRMENT [None]
